FAERS Safety Report 5022662-0 (Version None)
Quarter: 2006Q2

REPORT INFORMATION
  Report Type: 
  Country: None (occurrence: None)
  Receive Date: 20060605
  Receipt Date: 20060518
  Transmission Date: 20061013
  Serious: Yes (Other)
  Sender: FDA-Public Use
  Company Number: DE200602001752

PATIENT
  Age: 75 Year
  Sex: Female
  Weight: 62.2 kg

DRUGS (7)
  1. CYMBALTA [Suspect]
     Indication: DEPRESSION
     Dosage: 30 MG, EACH MORNING, ORAL
     Route: 048
     Dates: start: 20060124, end: 20060130
  2. PLAVIX [Concomitant]
  3. MIRTAZAPINE [Concomitant]
  4. SIMVASTATIN [Concomitant]
  5. FOSAMAX [Concomitant]
  6. UBRETID (DISTIGMINE BROMIDE) [Concomitant]
  7. CALCIUM                               (CALCIUM GLUBIONATE) [Concomitant]

REACTIONS (4)
  - BLOOD ELECTROLYTES ABNORMAL [None]
  - HAEMATOMA [None]
  - NAUSEA [None]
  - VOMITING [None]
